FAERS Safety Report 14795076 (Version 1)
Quarter: 2018Q2

REPORT INFORMATION
  Report Type: Spontaneous
  Country: DE (occurrence: DE)
  Receive Date: 20180423
  Receipt Date: 20180423
  Transmission Date: 20180711
  Serious: Yes (Other)
  Sender: FDA-Public Use
  Company Number: DE-PFIZER INC-2018157871

PATIENT
  Age: 30 Year
  Sex: Female

DRUGS (4)
  1. CLEXANE 40 [Concomitant]
     Indication: THROMBOSIS PROPHYLAXIS
     Dosage: 40 [MG/D ]/PROBABLY THE ENTIRE PREGNANCY BUT CONFIRMED ONLY UNTIL 21 6/7, 0. - 21.6. GESTAT. WEEK
     Route: 058
     Dates: start: 20170210, end: 20170713
  2. BISOPROLOL [Suspect]
     Active Substance: BISOPROLOL
     Indication: CONGESTIVE CARDIOMYOPATHY
     Dosage: 5 [MG/D ]/ PROBABLY THE ENTIRE PREGNANCY BUT CONFIRMED ONLY UNTIL 21 6/7, 0. - 21.6. GESTAT. WEEK
     Route: 048
     Dates: start: 20170210, end: 20170713
  3. EPLERENONE. [Suspect]
     Active Substance: EPLERENONE
     Indication: CONGESTIVE CARDIOMYOPATHY
     Dosage: 25 [MG/D ], 0. - 21.6. GESTATIONAL WEEK
     Route: 048
     Dates: start: 20170210, end: 20170713
  4. HCT [Concomitant]
     Active Substance: HYDROCHLOROTHIAZIDE
     Indication: CONGESTIVE CARDIOMYOPATHY
     Dosage: EXPOSURE UNCERTAIN, PERHAPS FROM WEEK 21.6, TRIMESTER: EXPOSURE UNKNOWN
     Route: 048

REACTIONS (1)
  - Gestational diabetes [Recovered/Resolved]
